FAERS Safety Report 6712414-5 (Version None)
Quarter: 2010Q2

REPORT INFORMATION
  Report Type: 
  Country: None (occurrence: None)
  Receive Date: 20100506
  Receipt Date: 20100421
  Transmission Date: 20101027
  Serious: Yes (Other)
  Sender: FDA-Public Use
  Company Number: DE-RANBAXY-2010RR-33449

PATIENT
  Age: 61 Year
  Sex: Male

DRUGS (3)
  1. RAMIPRIL [Suspect]
  2. CORTISONE [Concomitant]
     Indication: GLOMERULONEPHRITIS MINIMAL LESION
     Dosage: 4 MG, UNK
  3. CIPROFLOXACIN [Concomitant]

REACTIONS (2)
  - CHOROIDAL EFFUSION [None]
  - RETINAL DETACHMENT [None]
